FAERS Safety Report 11218384 (Version 3)
Quarter: 2015Q3

REPORT INFORMATION
  Report Type: Spontaneous
  Country: JP (occurrence: JP)
  Receive Date: 20150625
  Receipt Date: 20150813
  Transmission Date: 20151125
  Serious: Yes (Life-Threatening)
  Sender: FDA-Public Use
  Company Number: JP-BAYER-2015-361679

PATIENT
  Age: 81 Year
  Sex: Male
  Weight: 58.5 kg

DRUGS (5)
  1. NEXIUM [Concomitant]
     Active Substance: ESOMEPRAZOLE MAGNESIUM
     Route: 048
  2. NEXAVAR [Suspect]
     Active Substance: SORAFENIB
     Indication: HEPATIC CANCER STAGE IV
     Dosage: 400 MG, QD
     Route: 048
     Dates: start: 20150521, end: 20150609
  3. ZEFIX [Concomitant]
     Active Substance: LAMIVUDINE
     Route: 048
  4. NEXAVAR [Suspect]
     Active Substance: SORAFENIB
     Indication: METASTASES TO LUNG
  5. HEPSERA [Concomitant]
     Active Substance: ADEFOVIR DIPIVOXIL
     Route: 048

REACTIONS (5)
  - Anxiety [Not Recovered/Not Resolved]
  - Intentional product use issue [None]
  - Rash [Recovered/Resolved]
  - Hepatic encephalopathy [Recovered/Resolved]
  - Glucose urine [None]

NARRATIVE: CASE EVENT DATE: 20150609
